FAERS Safety Report 14309838 (Version 10)
Quarter: 2018Q4

REPORT INFORMATION
  Report Type: Spontaneous
  Country: US (occurrence: US)
  Receive Date: 20171220
  Receipt Date: 20181227
  Transmission Date: 20190204
  Serious: Yes (Hospitalization)
  Sender: FDA-Public Use
  Company Number: US-ACTELION-A-US2017-164499

PATIENT
  Age: 43 Year
  Sex: Male
  Weight: 185.94 kg

DRUGS (3)
  1. ADEMPAS [Suspect]
     Active Substance: RIOCIGUAT
     Indication: PRODUCT USED FOR UNKNOWN INDICATION
     Dosage: 2 UNK, UNK
     Route: 065
  2. OPSUMIT [Suspect]
     Active Substance: MACITENTAN
     Indication: PULMONARY ARTERIAL HYPERTENSION
     Dosage: 10 MG, QD
     Route: 048
  3. ADEMPAS [Suspect]
     Active Substance: RIOCIGUAT
     Dosage: 1 MG, UNK
     Route: 065
     Dates: start: 201712

REACTIONS (29)
  - Influenza [Unknown]
  - Limb discomfort [Unknown]
  - Heart rate increased [Unknown]
  - Back pain [Unknown]
  - Pyrexia [Unknown]
  - Hypothyroidism [Unknown]
  - Abdominal discomfort [Unknown]
  - Pain in extremity [Not Recovered/Not Resolved]
  - Headache [Not Recovered/Not Resolved]
  - Sluggishness [Unknown]
  - Neuropathy peripheral [Unknown]
  - Concomitant disease aggravated [Unknown]
  - Sinus congestion [Not Recovered/Not Resolved]
  - Cough [Unknown]
  - Fluid retention [Unknown]
  - Oedema peripheral [Unknown]
  - Face oedema [Unknown]
  - Oedema [Not Recovered/Not Resolved]
  - Polyuria [Unknown]
  - Respiratory tract infection viral [Unknown]
  - Unevaluable event [Unknown]
  - Somnolence [Unknown]
  - Muscle spasms [Unknown]
  - Nausea [Unknown]
  - Fatigue [Unknown]
  - Muscular weakness [Unknown]
  - Weight increased [Unknown]
  - Oxygen saturation decreased [Recovering/Resolving]
  - Condition aggravated [Unknown]

NARRATIVE: CASE EVENT DATE: 201712
